FAERS Safety Report 20660222 (Version 1)
Quarter: 2022Q1

REPORT INFORMATION
  Report Type: Spontaneous
  Country: US (occurrence: US)
  Receive Date: 20220331
  Receipt Date: 20220331
  Transmission Date: 20220424
  Serious: Yes (Other)
  Sender: FDA-Public Use
  Company Number: US-BRISTOL-MYERS SQUIBB COMPANY-2022-013190

PATIENT
  Age: 76 Year
  Sex: Female

DRUGS (31)
  1. REVLIMID [Suspect]
     Active Substance: LENALIDOMIDE
     Indication: Plasma cell myeloma
     Dosage: 1 CAPSULE EVERYDAY 21 DAYS AND REPEAT EVERY 28 DAYS
     Route: 048
     Dates: start: 20220221, end: 20220302
  2. POMALYST [Concomitant]
     Active Substance: POMALIDOMIDE
     Indication: Product used for unknown indication
     Dosage: TAKE 1 CAPSULE FOR 21 DAYS DAY 7 OFF FOR A 28 DAY CYCLE
     Route: 048
     Dates: start: 20201012
  3. POMALYST [Concomitant]
     Active Substance: POMALIDOMIDE
     Dosage: TAKE 1 CAPSULE FOR 21 DAYS DAY 7 OFF FOR A 28 DAY CYCLE
     Route: 048
     Dates: start: 20210308
  4. POMALYST [Concomitant]
     Active Substance: POMALIDOMIDE
     Dosage: TAKE 1 CAPSULE FOR 21 DAYS DAY 7 OFF FOR A 28 DAY CYCLE
     Route: 048
     Dates: start: 20200914
  5. POMALYST [Concomitant]
     Active Substance: POMALIDOMIDE
     Dosage: 21 DAYS THEN 7 DAYS OFF FOR 28 DAY CYCLE
     Route: 048
     Dates: start: 20201209
  6. POMALYST [Concomitant]
     Active Substance: POMALIDOMIDE
     Dosage: 21 DAYS THEN 7 DAYS OFF FOR 28 DAY CYCLE
     Route: 048
     Dates: start: 20210111
  7. POMALYST [Concomitant]
     Active Substance: POMALIDOMIDE
     Dosage: 21 DAYS THEN 7 DAYS OFF FOR 28 DAY CYCLE
     Route: 048
     Dates: start: 20200817
  8. POMALYST [Concomitant]
     Active Substance: POMALIDOMIDE
     Dosage: 21 DAYS THEN 7 DAYS OFF FOR 28 DAY CYCLE
     Route: 048
     Dates: start: 20210208
  9. POMALYST [Concomitant]
     Active Substance: POMALIDOMIDE
     Dosage: 21 DAYS THEN 7 DAYS OFF FOR 28 DAY CYCLE
     Route: 048
     Dates: start: 20201109
  10. ASPIRIN [Concomitant]
     Active Substance: ASPIRIN
     Indication: Product used for unknown indication
     Dosage: LOW DOSE
     Route: 048
  11. NINLARO [Concomitant]
     Active Substance: IXAZOMIB CITRATE
     Indication: Product used for unknown indication
     Dosage: ON DAY 1, 8 AND 15 OF 28 DAYS CYCLE
     Route: 048
     Dates: start: 20200912
  12. NINLARO [Concomitant]
     Active Substance: IXAZOMIB CITRATE
     Dosage: ON DAY 1, 8 AND 15 OF 28 DAYS CYCLE
     Route: 048
     Dates: start: 20200914
  13. NINLARO [Concomitant]
     Active Substance: IXAZOMIB CITRATE
     Dosage: ON DAY 1, 8 AND 15 OF 28 DAYS CYCLE
     Route: 048
     Dates: start: 20210308
  14. ACYCLOVIR [Concomitant]
     Active Substance: ACYCLOVIR
     Indication: Product used for unknown indication
     Dosage: 200 MG CAPSULE
     Route: 048
  15. ALKA-SELTZER [Concomitant]
     Active Substance: ANHYDROUS CITRIC ACID\ASPIRIN\SODIUM BICARBONATE
     Indication: Product used for unknown indication
     Route: 048
  16. ATORVASTATIN [Concomitant]
     Active Substance: ATORVASTATIN
     Indication: Product used for unknown indication
     Route: 048
  17. CLOPIDOGREL [Concomitant]
     Active Substance: CLOPIDOGREL BISULFATE
     Indication: Product used for unknown indication
     Route: 048
  18. DEXAMETHASONE [Concomitant]
     Active Substance: DEXAMETHASONE
     Indication: Product used for unknown indication
     Route: 048
  19. DULOXETINE [Concomitant]
     Active Substance: DULOXETINE
     Indication: Product used for unknown indication
     Route: 048
  20. FUROSEMIDE [Concomitant]
     Active Substance: FUROSEMIDE
     Indication: Product used for unknown indication
     Route: 048
  21. GLIPIZIDE [Concomitant]
     Active Substance: GLIPIZIDE
     Indication: Product used for unknown indication
     Route: 048
  22. LATANOPROST [Concomitant]
     Active Substance: LATANOPROST
     Indication: Product used for unknown indication
     Route: 048
  23. MECLIZINE [Concomitant]
     Active Substance: MECLIZINE HYDROCHLORIDE
     Indication: Product used for unknown indication
     Route: 048
  24. METFORMIN HYDROCHLORIDE [Concomitant]
     Active Substance: METFORMIN HYDROCHLORIDE
     Indication: Product used for unknown indication
     Route: 048
  25. METOPROLOL [Concomitant]
     Active Substance: METOPROLOL
     Indication: Product used for unknown indication
     Route: 048
  26. OMEPRAZOLE [Concomitant]
     Active Substance: OMEPRAZOLE
     Indication: Product used for unknown indication
     Route: 048
  27. ONDANSETRON [Concomitant]
     Active Substance: ONDANSETRON
     Indication: Product used for unknown indication
     Route: 048
  28. OXYCONTIN [Concomitant]
     Active Substance: OXYCODONE HYDROCHLORIDE
     Indication: Product used for unknown indication
  29. QUETIAPINE [Concomitant]
     Active Substance: QUETIAPINE
     Indication: Product used for unknown indication
     Route: 048
     Dates: start: 20200912
  30. VENTOLIN HFA [Concomitant]
     Active Substance: ALBUTEROL SULFATE
     Indication: Product used for unknown indication
     Route: 048
  31. VITAMIN D [Concomitant]
     Active Substance: VITAMIN D NOS
     Indication: Product used for unknown indication
     Route: 048

REACTIONS (1)
  - Blood creatinine increased [Unknown]

NARRATIVE: CASE EVENT DATE: 20220302
